FAERS Safety Report 9382933 (Version 1)
Quarter: 2013Q3

REPORT INFORMATION
  Report Type: Spontaneous
  Country: US (occurrence: US)
  Receive Date: 20130703
  Receipt Date: 20130703
  Transmission Date: 20140515
  Serious: Yes (Hospitalization)
  Sender: FDA-Public Use
  Company Number: US-ABBOTT-13P-163-1111191-00

PATIENT
  Sex: Female
  Weight: 52.21 kg

DRUGS (12)
  1. HUMIRA [Suspect]
     Indication: CROHN^S DISEASE
     Route: 058
     Dates: start: 201206, end: 201206
  2. HUMIRA [Suspect]
     Route: 058
     Dates: start: 201206, end: 201206
  3. HUMIRA [Suspect]
     Route: 058
     Dates: start: 201207
  4. GABAPENTIN [Concomitant]
     Indication: PRODUCT USED FOR UNKNOWN INDICATION
  5. IBUPROFEN [Concomitant]
     Indication: PRODUCT USED FOR UNKNOWN INDICATION
  6. ZOFRAN [Concomitant]
     Indication: NAUSEA
     Dosage: ONE HOUR BEFORE EACH MEAL
  7. ZOFRAN [Concomitant]
     Indication: VOMITING
  8. PHENERGAN [Concomitant]
     Indication: NAUSEA
  9. OXYCODONE [Concomitant]
     Indication: PAIN
  10. METHADONE [Concomitant]
     Indication: BREAKTHROUGH PAIN
  11. KLONOPIN [Concomitant]
     Indication: STRESS
     Dates: end: 2013
  12. KLONOPIN [Concomitant]
     Dates: start: 2013

REACTIONS (12)
  - Abdominal distension [Recovered/Resolved]
  - Local swelling [Recovered/Resolved]
  - Local swelling [Recovering/Resolving]
  - Bone pain [Not Recovered/Not Resolved]
  - Hypokalaemia [Recovered/Resolved]
  - Crohn^s disease [Not Recovered/Not Resolved]
  - Intestinal stenosis [Not Recovered/Not Resolved]
  - Cough [Not Recovered/Not Resolved]
  - Rib fracture [Recovering/Resolving]
  - Oxygen saturation decreased [Recovering/Resolving]
  - Injection site pain [Not Recovered/Not Resolved]
  - Injection site bruising [Not Recovered/Not Resolved]
